FAERS Safety Report 25880855 (Version 2)
Quarter: 2025Q4

REPORT INFORMATION
  Report Type: Spontaneous
  Country: CN (occurrence: CN)
  Receive Date: 20251004
  Receipt Date: 20251007
  Transmission Date: 20260117
  Serious: Yes (Life-Threatening, Hospitalization)
  Sender: MACLEODS
  Company Number: CN-MACLEODS PHARMA-MAC2025055506

PATIENT

DRUGS (3)
  1. METFORMIN [Suspect]
     Active Substance: METFORMIN HYDROCHLORIDE
     Indication: Product used for unknown indication
     Dosage: ONE BOX OF METFORMIN EXTENDED-RELEASE TABLETS (APPROXIMATELY 30 TABLETS/15 G)
     Route: 065
  2. ENALAPRIL [Suspect]
     Active Substance: ENALAPRIL
     Indication: Product used for unknown indication
     Dosage: APPROXIMATELY 16 TABLETS/80 MG
     Route: 065
  3. RESERPINE [Suspect]
     Active Substance: RESERPINE
     Indication: Product used for unknown indication
     Dosage: ONE BOTTLE OF RESERPINE TABLETS (APPROXIMATELY 100 TABLETS/25 MG),
     Route: 065

REACTIONS (25)
  - Shock [Recovered/Resolved]
  - Metabolic acidosis [Recovered/Resolved]
  - Hypoglycaemia [Recovered/Resolved]
  - Hyperlactacidaemia [Recovered/Resolved]
  - Acute kidney injury [Recovered/Resolved]
  - Toxicity to various agents [Recovered/Resolved]
  - Hypothermia [Recovered/Resolved]
  - Disseminated intravascular coagulation [Recovered/Resolved]
  - Respiratory failure [Recovered/Resolved]
  - Pulmonary oedema [Recovered/Resolved]
  - Ileus paralytic [Recovered/Resolved]
  - Gastrointestinal haemorrhage [Recovered/Resolved]
  - Respiratory tract haemorrhage [Recovered/Resolved]
  - Myocardial injury [Recovered/Resolved]
  - Capillary leak syndrome [Recovered/Resolved]
  - Abdominal compartment syndrome [Recovered/Resolved]
  - Multiple organ dysfunction syndrome [Recovered/Resolved]
  - Toxic encephalopathy [Recovered/Resolved]
  - Hypoxic-ischaemic encephalopathy [Recovered/Resolved]
  - Coma [Recovered/Resolved]
  - Mydriasis [Recovered/Resolved]
  - Intentional overdose [Recovered/Resolved]
  - Distributive shock [Recovered/Resolved]
  - Lactic acidosis [Recovered/Resolved]
  - Drug interaction [Recovered/Resolved]

NARRATIVE: CASE EVENT DATE: 20220101
